FAERS Safety Report 4753225-X (Version None)
Quarter: 2005Q3

REPORT INFORMATION
  Report Type: 
  Country: None (occurrence: None)
  Receive Date: 20050824
  Receipt Date: 20050809
  Transmission Date: 20060218
  Serious: Yes (Other)
  Sender: FDA-Public Use
  Company Number: 200507041

PATIENT
  Age: 32 Year
  Sex: Female
  Weight: 67 kg

DRUGS (6)
  1. TAZORAC [Suspect]
     Indication: ACNE
     Dosage: 3% QOD TP
     Dates: start: 20010101, end: 20030603
  2. TAZORAC [Suspect]
     Indication: PSORIASIS
     Dosage: 3% QOD TP
     Dates: start: 20010101, end: 20030603
  3. TAZORAC [Suspect]
     Indication: ACNE
     Dosage: 3% QOD TP
     Dates: start: 20040101
  4. TAZORAC [Suspect]
     Indication: PSORIASIS
     Dosage: 3% QOD TP
     Dates: start: 20040101
  5. DOVONEX [Concomitant]
  6. DIPROLENE [Concomitant]

REACTIONS (6)
  - DRUG EXPOSURE DURING PREGNANCY [None]
  - FATIGUE [None]
  - HODGKIN'S DISEASE [None]
  - HYPOGLYCAEMIA [None]
  - PREGNANCY [None]
  - PRURITUS GENERALISED [None]
